FAERS Safety Report 17757763 (Version 1)
Quarter: 2020Q2

REPORT INFORMATION
  Report Type: Spontaneous
  Country: US (occurrence: US)
  Receive Date: 20200507
  Receipt Date: 20200507
  Transmission Date: 20200714
  Serious: No
  Sender: FDA-Public Use
  Company Number: US-009507513-2005USA001043

PATIENT
  Sex: Male

DRUGS (2)
  1. PROVENTIL [Suspect]
     Active Substance: ALBUTEROL
     Dosage: UNK
  2. PROVENTIL [Suspect]
     Active Substance: ALBUTEROL
     Indication: CHRONIC OBSTRUCTIVE PULMONARY DISEASE
     Dosage: UNK
     Dates: start: 202002

REACTIONS (5)
  - Product quality issue [Unknown]
  - Drug ineffective for unapproved indication [Unknown]
  - Poor quality device used [Unknown]
  - Product taste abnormal [Unknown]
  - Product prescribing error [Unknown]

NARRATIVE: CASE EVENT DATE: 202002
